FAERS Safety Report 7513236-8 (Version None)
Quarter: 2011Q2

REPORT INFORMATION
  Report Type: 
  Country: None (occurrence: None)
  Receive Date: 20110531
  Receipt Date: 20110502
  Transmission Date: 20111010
  Serious: Yes (Other)
  Sender: FDA-Public Use
  Company Number: US-BAYER-2011-013139

PATIENT
  Sex: Female
  Weight: 104.31 kg

DRUGS (11)
  1. CONCERTA [Concomitant]
     Dosage: 36 MG, UNK
  2. YAZ [Suspect]
     Indication: PRODUCT USED FOR UNKNOWN INDICATION
     Dosage: UNK
     Dates: start: 20061102, end: 20080104
  3. TRAZODONE HCL [Concomitant]
     Dosage: 50 MG, QD
  4. LORATADINE [Concomitant]
     Dosage: 10 MG, UNK
  5. NEXIUM [Concomitant]
     Dosage: 40 MG, UNK
  6. YAZ [Suspect]
     Dosage: UNK
     Dates: start: 20080628, end: 20100701
  7. ASCORBIC ACID [Concomitant]
     Dosage: UNK UNK, QD
  8. STRATTERA [Concomitant]
     Dosage: 40 MG, QD
  9. SINGULAIR [Concomitant]
     Dosage: 10 MG, QD
  10. RANITIDINE [Concomitant]
     Dosage: 150 MG, UNK
  11. ACTONEL [Concomitant]
     Dosage: 300 MG, UNK

REACTIONS (4)
  - GALLBLADDER DISORDER [None]
  - CHOLECYSTITIS CHRONIC [None]
  - ABDOMINAL PAIN [None]
  - GALLBLADDER CHOLESTEROLOSIS [None]
